FAERS Safety Report 4713620-1 (Version None)
Quarter: 2005Q3

REPORT INFORMATION
  Report Type: 
  Country: None (occurrence: None)
  Receive Date: 20050712
  Receipt Date: 20050628
  Transmission Date: 20060218
  Serious: Yes (Death, Other)
  Sender: FDA-Public Use
  Company Number: USA050597738

PATIENT
  Age: 85 Year
  Sex: Male

DRUGS (1)
  1. XIGRIS [Suspect]
     Indication: CLOSTRIDIAL INFECTION
     Dates: start: 20050501, end: 20050501

REACTIONS (5)
  - CARDIAC DISORDER [None]
  - DIALYSIS [None]
  - HYPOTENSION [None]
  - RENAL FAILURE [None]
  - RESPIRATORY FAILURE [None]
